FAERS Safety Report 16744132 (Version 1)
Quarter: 2019Q3

REPORT INFORMATION
  Report Type: Spontaneous
  Country: US (occurrence: US)
  Receive Date: 20190709
  Receipt Date: 20190709
  Transmission Date: 20191005
  Serious: No
  Sender: FDA-Public Use
  Company Number: None

PATIENT
  Age: 72 Year
  Sex: Female
  Weight: 78.47 kg

DRUGS (4)
  1. CARBOPLATIN 630MG [Suspect]
     Active Substance: CARBOPLATIN
     Dates: start: 20190116, end: 20190501
  2. PERJETA [Suspect]
     Active Substance: PERTUZUMAB
  3. TRASTUZUMAB. [Suspect]
     Active Substance: TRASTUZUMAB
  4. DOCETAXEL 150MG [Suspect]
     Active Substance: DOCETAXEL

REACTIONS (2)
  - Polyneuropathy [None]
  - Neuropathy peripheral [None]

NARRATIVE: CASE EVENT DATE: 20190422
